FAERS Safety Report 18100428 (Version 5)
Quarter: 2022Q3

REPORT INFORMATION
  Report Type: Report from Study
  Country: US (occurrence: US)
  Receive Date: 20200731
  Receipt Date: 20220730
  Transmission Date: 20221026
  Serious: Yes (Hospitalization, Other)
  Sender: FDA-Public Use
  Company Number: US-BRISTOL-MYERS SQUIBB COMPANY-BMS-2020-057385

PATIENT
  Age: 53 Year
  Sex: Male
  Weight: 78 kg

DRUGS (24)
  1. BMS-986249 [Suspect]
     Active Substance: BMS-986249
     Indication: Colorectal cancer
     Dosage: 1600 MILLIGRAM
     Route: 065
     Dates: start: 20191121, end: 20191121
  2. BMS-986249 [Suspect]
     Active Substance: BMS-986249
     Dosage: 1600 MILLIGRAM
     Route: 065
     Dates: start: 20200604, end: 20200604
  3. NIVOLUMAB [Suspect]
     Active Substance: NIVOLUMAB
     Indication: Colorectal cancer
     Dosage: 480 MILLIGRAM
     Route: 065
     Dates: start: 20191121, end: 20191121
  4. NIVOLUMAB [Suspect]
     Active Substance: NIVOLUMAB
     Dosage: 480 MILLIGRAM
     Route: 065
     Dates: start: 20200604, end: 20200604
  5. SODIUM CHLORIDE [Concomitant]
     Active Substance: SODIUM CHLORIDE
     Indication: Adverse event
     Dosage: 1000 UNIT UNSPECIFIED
     Route: 042
     Dates: start: 20200715, end: 20200715
  6. SODIUM CHLORIDE [Concomitant]
     Active Substance: SODIUM CHLORIDE
     Indication: Adverse event
     Dosage: 2400 UNIT UNSPECIFIED
     Route: 042
     Dates: start: 20200717, end: 20200718
  7. SODIUM CHLORIDE [Concomitant]
     Active Substance: SODIUM CHLORIDE
     Indication: Adverse event
     Dosage: 2400 UNIT UNSPECIFIED
     Route: 042
     Dates: start: 20200727
  8. SODIUM CHLORIDE [Concomitant]
     Active Substance: SODIUM CHLORIDE
     Indication: Product used for unknown indication
     Dosage: 2000 UNIT UNSPECIFIED
     Route: 042
     Dates: start: 20200705, end: 20200705
  9. POTASSIUM CHLORIDE [Concomitant]
     Active Substance: POTASSIUM CHLORIDE
     Indication: Adverse event
     Dosage: 40 UNIT UNSPECIFIED
     Route: 042
     Dates: start: 20200719, end: 20200719
  10. POTASSIUM CHLORIDE [Concomitant]
     Active Substance: POTASSIUM CHLORIDE
     Indication: Product used for unknown indication
     Dosage: 30 UNIT UNSPECIFIED
     Route: 042
     Dates: start: 20200705, end: 20200705
  11. POTASSIUM CHLORIDE [Concomitant]
     Active Substance: POTASSIUM CHLORIDE
     Dosage: 30 ABSENT 30 ABSENT
     Route: 048
     Dates: start: 20200701, end: 20200701
  12. MAGNESIUM SULFATE [Concomitant]
     Active Substance: MAGNESIUM SULFATE
     Indication: Adverse event
     Route: 042
     Dates: start: 20200719, end: 20200719
  13. SOLU-MEDROL [Concomitant]
     Active Substance: METHYLPREDNISOLONE SODIUM SUCCINATE
     Indication: Product used for unknown indication
     Dosage: 76.9 MILLIGRAM
     Route: 042
     Dates: start: 20200701, end: 20200701
  14. SOLU-MEDROL [Concomitant]
     Active Substance: METHYLPREDNISOLONE SODIUM SUCCINATE
     Dosage: 140 MILLIGRAM
     Route: 042
     Dates: start: 20200705, end: 20200709
  15. SOLU-MEDROL [Concomitant]
     Active Substance: METHYLPREDNISOLONE SODIUM SUCCINATE
     Dosage: 140 MILLIGRAM
     Route: 042
     Dates: start: 20200711, end: 20200712
  16. SYNTHROID [Concomitant]
     Active Substance: LEVOTHYROXINE SODIUM
     Indication: Product used for unknown indication
     Dosage: 25 MICROGRAM
     Route: 047
     Dates: start: 20200102
  17. IMODIUM [Concomitant]
     Active Substance: LOPERAMIDE HYDROCHLORIDE
     Indication: Product used for unknown indication
     Dosage: 16 MILLIGRAM
     Route: 048
     Dates: start: 20200705
  18. COMPAZINE [Concomitant]
     Active Substance: PROCHLORPERAZINE MALEATE
     Indication: Product used for unknown indication
     Dosage: 10 MILLIGRAM
     Route: 048
     Dates: start: 20200705, end: 20200705
  19. TRAMADOL HYDROCHLORIDE [Concomitant]
     Active Substance: TRAMADOL HYDROCHLORIDE
     Indication: Product used for unknown indication
     Dosage: 50 MILLIGRAM
     Route: 048
     Dates: start: 20191029
  20. ALBUTEROL [Concomitant]
     Active Substance: ALBUTEROL
     Indication: Product used for unknown indication
     Dosage: 12 ABSENT 12 ABSENT
     Route: 055
     Dates: start: 20200413
  21. VANCOCIN [Concomitant]
     Active Substance: VANCOMYCIN HYDROCHLORIDE
     Indication: Product used for unknown indication
     Dosage: 1000 MILLIGRAM
     Route: 042
     Dates: start: 20200413
  22. DOXYCYCLINE [Concomitant]
     Active Substance: DOXYCYCLINE
     Indication: Product used for unknown indication
     Dosage: 100 MILLIGRAM
     Route: 042
     Dates: start: 20200413
  23. DELTASONE [Concomitant]
     Active Substance: PREDNISONE
     Indication: Product used for unknown indication
     Dosage: 20 MILLIGRAM
     Route: 048
     Dates: start: 20200705, end: 20200705
  24. PREDNISONE [Concomitant]
     Active Substance: PREDNISONE
     Indication: Product used for unknown indication
     Dosage: 80 MILLIGRAM
     Route: 048
     Dates: start: 20200712, end: 20200726

REACTIONS (2)
  - Diarrhoea [Recovered/Resolved]
  - Acute kidney injury [Recovered/Resolved]

NARRATIVE: CASE EVENT DATE: 20200715
